FAERS Safety Report 23844435 (Version 1)
Quarter: 2024Q2

REPORT INFORMATION
  Report Type: Spontaneous
  Country: BR (occurrence: BR)
  Receive Date: 20240510
  Receipt Date: 20240510
  Transmission Date: 20240716
  Serious: Yes (Disabling, Congenital Anomaly, Other)
  Sender: FDA-Public Use
  Company Number: BR-SA-SAC20240506000171

PATIENT
  Sex: Female

DRUGS (1)
  1. SABRIL [Suspect]
     Active Substance: VIGABATRIN
     Indication: Product used for unknown indication
     Dosage: UNK
     Route: 065

REACTIONS (19)
  - Loss of personal independence in daily activities [Unknown]
  - Cerebral palsy [Unknown]
  - Intellectual disability [Unknown]
  - Quadriparesis [Unknown]
  - Microcephaly [Unknown]
  - Seizure [Unknown]
  - Epilepsy [Unknown]
  - Brain malformation [Unknown]
  - Visual impairment [Unknown]
  - Congenital Zika syndrome [Unknown]
  - Congenital hearing disorder [Unknown]
  - Dysphagia [Unknown]
  - Musculoskeletal stiffness [Unknown]
  - Excessive eye blinking [Unknown]
  - Weight gain poor [Unknown]
  - Anal incontinence [Unknown]
  - Aggression [Unknown]
  - Insomnia [Unknown]
  - Irritability [Unknown]
